FAERS Safety Report 24939686 (Version 2)
Quarter: 2025Q1

REPORT INFORMATION
  Report Type: Spontaneous
  Country: JP (occurrence: JP)
  Receive Date: 20250207
  Receipt Date: 20250303
  Transmission Date: 20250409
  Serious: Yes (Hospitalization, Other)
  Sender: GLAXOSMITHKLINE
  Company Number: JP-GLAXOSMITHKLINE INC-JP2025013237

PATIENT

DRUGS (1)
  1. NUCALA [Suspect]
     Active Substance: MEPOLIZUMAB
     Indication: Asthma
     Route: 058

REACTIONS (12)
  - Eosinophilic granulomatosis with polyangiitis [Recovered/Resolved with Sequelae]
  - Guillain-Barre syndrome [Recovered/Resolved with Sequelae]
  - Neuropathy peripheral [Recovered/Resolved with Sequelae]
  - Cholangitis sclerosing [Unknown]
  - Autoimmune pancreatitis [Unknown]
  - Altered state of consciousness [Recovering/Resolving]
  - Renal impairment [Unknown]
  - Hypothyroidism [Unknown]
  - Rectal ulcer [Unknown]
  - Pneumonia [Recovering/Resolving]
  - Asthma [Recovered/Resolved with Sequelae]
  - Ventricular extrasystoles [Unknown]
